FAERS Safety Report 9264192 (Version 2)
Quarter: 2013Q2

REPORT INFORMATION
  Report Type: Report from Study
  Country: US (occurrence: US)
  Receive Date: 20130430
  Receipt Date: 20130507
  Transmission Date: 20140414
  Serious: Yes (Hospitalization)
  Sender: FDA-Public Use
  Company Number: US-ACTELION-A-US2013-82386

PATIENT
  Age: 48 Year
  Sex: Female

DRUGS (23)
  1. TRACLEER [Suspect]
     Indication: PULMONARY ARTERIAL HYPERTENSION
     Dosage: 125 MG, BID
     Route: 048
  2. TRACLEER [Suspect]
     Dosage: 62.5 MG BID
     Route: 048
     Dates: start: 201003
  3. REVATIO [Suspect]
     Indication: PULMONARY ARTERIAL HYPERTENSION
     Dosage: 20 MG, TID
     Dates: start: 201003
  4. LORAZEPAM [Concomitant]
     Dosage: 10 MG, UNK
  5. ASA [Concomitant]
     Dosage: 81 MG, UNK
  6. PREDNISONE [Concomitant]
     Dosage: 10 MG, OD
  7. LEVEMIR [Concomitant]
     Dosage: 100 U, UNK
  8. WARFARIN SODIUM [Concomitant]
     Dosage: 60 MG, 7 DAYS PER WEEK
  9. SPIRONOLACTONE [Concomitant]
     Dosage: 100 MG, UNK
  10. METANX [Concomitant]
     Dosage: UNK, BID
  11. SINGULAIR [Concomitant]
     Dosage: 10 MG, UNK
  12. CLARITIN [Concomitant]
     Dosage: 5 MG, OD
  13. FLEXERIL [Concomitant]
     Dosage: 10 MG, OD
  14. TRAMADOL [Concomitant]
     Dosage: 100 MG, BID
  15. NORCO [Concomitant]
     Dosage: 10 UNK, UNK
  16. NORCO [Concomitant]
     Dosage: 25 UNK, UNK
  17. VITAMIN D [Concomitant]
     Dosage: 10000 IU, UNK
  18. VITAMIN E [Concomitant]
     Dosage: 10000 IU, UNK
  19. VITAMIN C [Concomitant]
     Dosage: 1000 MG, UNK
  20. ALBUTEROL W/IPRATROPIUM [Concomitant]
     Dosage: UNK, PRN
  21. ADVAIR [Concomitant]
     Dosage: UNK, BID
  22. POTASSIUM [Concomitant]
     Dosage: 20 MEQ, UNK
  23. NPH INSULIN [Concomitant]

REACTIONS (11)
  - Vaginal haemorrhage [Recovered/Resolved]
  - Hysterectomy [Recovered/Resolved]
  - Uterine enlargement [Recovered/Resolved]
  - Uterine cyst [Recovered/Resolved]
  - Laparoscopic uterine nerve ablation [Recovered/Resolved]
  - Rheumatoid arthritis [Not Recovered/Not Resolved]
  - Sinusitis [Not Recovered/Not Resolved]
  - Ear infection [Not Recovered/Not Resolved]
  - Anaemia [Not Recovered/Not Resolved]
  - Dyspnoea [Not Recovered/Not Resolved]
  - Heart rate abnormal [Not Recovered/Not Resolved]
